FAERS Safety Report 4804691-2 (Version None)
Quarter: 2005Q4

REPORT INFORMATION
  Report Type: 
  Country: None (occurrence: None)
  Receive Date: 20051014
  Receipt Date: 20051007
  Transmission Date: 20060501
  Serious: Yes (Other)
  Sender: FDA-Public Use
  Company Number: 163-20785-04100115

PATIENT
  Sex: Male

DRUGS (6)
  1. THALIDOMIDE\PLACEBO (THALIDOMIDE) (CAPSULES) [Suspect]
     Indication: PROSTATIC INTRAEPITHELIAL NEOPLASIA
     Dosage: 200 MG OR PLACEBO, DAILY, ORAL; 100 MG OR PLACEBO, DAILY, ORAL; 200 MG OR PLACEBO, DAILY, ORAL
     Route: 048
     Dates: start: 20030210
  2. THALIDOMIDE\PLACEBO (THALIDOMIDE) (CAPSULES) [Suspect]
     Indication: PROSTATIC INTRAEPITHELIAL NEOPLASIA
     Dosage: 200 MG OR PLACEBO, DAILY, ORAL; 100 MG OR PLACEBO, DAILY, ORAL; 200 MG OR PLACEBO, DAILY, ORAL
     Route: 048
     Dates: start: 20030929
  3. THALIDOMIDE\PLACEBO (THALIDOMIDE) (CAPSULES) [Suspect]
     Indication: PROSTATIC INTRAEPITHELIAL NEOPLASIA
     Dosage: 200 MG OR PLACEBO, DAILY, ORAL; 100 MG OR PLACEBO, DAILY, ORAL; 200 MG OR PLACEBO, DAILY, ORAL
     Route: 048
     Dates: start: 20040712
  4. LEUPROLIDE ACETATE [Suspect]
     Indication: PROSTATIC INTRAEPITHELIAL NEOPLASIA
     Dosage: SEE IMAGE
     Dates: start: 20030210
  5. LEUPROLIDE ACETATE [Suspect]
     Indication: PROSTATIC INTRAEPITHELIAL NEOPLASIA
     Dosage: SEE IMAGE
     Dates: start: 20030929
  6. LEUPROLIDE ACETATE [Suspect]
     Indication: PROSTATIC INTRAEPITHELIAL NEOPLASIA
     Dosage: SEE IMAGE
     Dates: start: 20040712

REACTIONS (21)
  - ASTHENIA [None]
  - CONSTIPATION [None]
  - DIZZINESS [None]
  - FATIGUE [None]
  - GASTRIC ULCER [None]
  - GASTRITIS [None]
  - HAEMOGLOBIN ABNORMAL [None]
  - HEADACHE [None]
  - HYPERCALCAEMIA [None]
  - HYPERTENSION [None]
  - HYPOALBUMINAEMIA [None]
  - INCONTINENCE [None]
  - INFECTION [None]
  - LETHARGY [None]
  - MALAISE [None]
  - MYALGIA [None]
  - NAUSEA [None]
  - OEDEMA [None]
  - PERIPHERAL SENSORY NEUROPATHY [None]
  - TREMOR [None]
  - WEIGHT INCREASED [None]
